FAERS Safety Report 23294297 (Version 1)
Quarter: 2023Q4

REPORT INFORMATION
  Report Type: Spontaneous
  Country: None (occurrence: US)
  Receive Date: 20231213
  Receipt Date: 20231213
  Transmission Date: 20240110
  Serious: No
  Sender: FDA-Public Use
  Company Number: US-Harrow Eye-2149337

PATIENT
  Sex: Male

DRUGS (11)
  1. AZITHROMYCIN [Suspect]
     Active Substance: AZITHROMYCIN
     Indication: Mycobacterium abscessus infection
  2. MOXIFLOXACIN [Suspect]
     Active Substance: MOXIFLOXACIN
  3. CIPROFLOXACIN [Suspect]
     Active Substance: CIPROFLOXACIN
  4. TIGECYCLINE [Suspect]
     Active Substance: TIGECYCLINE
  5. VANCOMYCIN [Suspect]
     Active Substance: VANCOMYCIN
  6. CLARITHROMYCIN [Suspect]
     Active Substance: CLARITHROMYCIN
  7. DOXYCYCLINE [Suspect]
     Active Substance: DOXYCYCLINE
  8. LINEZOLID [Suspect]
     Active Substance: LINEZOLID
  9. IMIPENEM [Suspect]
     Active Substance: IMIPENEM
  10. CEFOXITIN [Suspect]
     Active Substance: CEFOXITIN SODIUM
  11. AMIKACIN [Suspect]
     Active Substance: AMIKACIN

REACTIONS (3)
  - Bacterial infection [Unknown]
  - Malaise [Unknown]
  - Diarrhoea [Unknown]
